FAERS Safety Report 14331118 (Version 1)
Quarter: 2017Q4

REPORT INFORMATION
  Report Type: Spontaneous
  Country: IT (occurrence: IT)
  Receive Date: 20171228
  Receipt Date: 20171228
  Transmission Date: 20180321
  Serious: Yes (Hospitalization)
  Sender: FDA-Public Use
  Company Number: IT-CIPLA LTD.-2017IT27129

PATIENT

DRUGS (6)
  1. ADENURIC [Suspect]
     Active Substance: FEBUXOSTAT
     Dosage: 80 MG, DAILY
     Route: 048
     Dates: start: 20150917
  2. LAMIVUDINE. [Suspect]
     Active Substance: LAMIVUDINE
     Dosage: 100 MG, DAILY
     Route: 048
     Dates: start: 20150915
  3. LONQUEX [Suspect]
     Active Substance: LIPEGFILGRASTIM
     Indication: PROPHYLAXIS
     Dosage: 6 MG, DAILY
     Route: 058
     Dates: start: 20150921, end: 20150921
  4. BENDAMUSTINE [Concomitant]
     Active Substance: BENDAMUSTINE
     Indication: LYMPHOMA
     Dosage: 432 MG, UNK
     Route: 042
     Dates: start: 20150919, end: 20160211
  5. EFRIVIRAL [Suspect]
     Active Substance: ACYCLOVIR
     Dosage: 800 MG, DAILY
     Route: 048
     Dates: start: 20150917
  6. RITUXIMAB. [Concomitant]
     Active Substance: RITUXIMAB
     Indication: LYMPHOMA
     Dosage: 684 MG, UNK
     Route: 042
     Dates: start: 20150916, end: 20160211

REACTIONS (1)
  - Atrial fibrillation [Recovered/Resolved]

NARRATIVE: CASE EVENT DATE: 20151001
